FAERS Safety Report 18382166 (Version 1)
Quarter: 2020Q4

REPORT INFORMATION
  Report Type: Spontaneous
  Country: US (occurrence: US)
  Receive Date: 20201013
  Receipt Date: 20201013
  Transmission Date: 20210114
  Serious: Yes (Disabling)
  Sender: FDA-Public Use
  Company Number: None

PATIENT
  Age: 40 Year
  Sex: Female
  Weight: 58.5 kg

DRUGS (6)
  1. LORAZEPAM. [Suspect]
     Active Substance: LORAZEPAM
     Indication: ANXIETY
     Dates: start: 20200209, end: 20200803
  2. LORAZEPAM. [Suspect]
     Active Substance: LORAZEPAM
     Indication: TREMOR
     Dates: start: 20200209, end: 20200803
  3. D MANNOSE [Concomitant]
  4. VITAMIN C [Concomitant]
     Active Substance: ASCORBIC ACID
  5. LORAZEPAM. [Suspect]
     Active Substance: LORAZEPAM
     Indication: AKATHISIA
     Dates: start: 20200209, end: 20200803
  6. ZINC. [Concomitant]
     Active Substance: ZINC

REACTIONS (20)
  - Dyspnoea [None]
  - Paraesthesia [None]
  - Akathisia [None]
  - Dependence [None]
  - Sleep terror [None]
  - Panic attack [None]
  - Dizziness [None]
  - Depression [None]
  - Tremor [None]
  - Chest pain [None]
  - Autophobia [None]
  - Withdrawal syndrome [None]
  - Insomnia [None]
  - Decreased appetite [None]
  - Tinnitus [None]
  - Depersonalisation/derealisation disorder [None]
  - Anxiety [None]
  - Skin burning sensation [None]
  - Derealisation [None]
  - Urinary tract infection [None]

NARRATIVE: CASE EVENT DATE: 20200310
